FAERS Safety Report 7383223-1 (Version None)
Quarter: 2011Q1

REPORT INFORMATION
  Report Type: 
  Country: None (occurrence: None)
  Receive Date: 20110325
  Receipt Date: 20110325
  Transmission Date: 20110831
  Serious: Yes (Hospitalization)
  Sender: FDA-Public Use
  Company Number: None

PATIENT
  Age: 37 Year
  Sex: Female
  Weight: 94.5 kg

DRUGS (4)
  1. METOPROLOL TARTRATE [Concomitant]
  2. ALEVE [Concomitant]
  3. LISINOPRIL [Suspect]
     Indication: HYPERTENSION
     Dosage: 40MG DAILY PO  RECENT
     Route: 048
  4. HYDROCHLOROTHIAZIDE [Concomitant]

REACTIONS (1)
  - ANGIOEDEMA [None]
